FAERS Safety Report 24896815 (Version 4)
Quarter: 2025Q1

REPORT INFORMATION
  Report Type: Spontaneous
  Country: DE (occurrence: DE)
  Receive Date: 20250128
  Receipt Date: 20250307
  Transmission Date: 20250408
  Serious: No
  Sender: ASTELLAS
  Company Number: DE-ASTELLAS-2024-AER-017954

PATIENT
  Age: 51 Year
  Sex: Female

DRUGS (2)
  1. VEOZAH [Suspect]
     Active Substance: FEZOLINETANT
     Indication: Menopausal symptoms
     Route: 048
     Dates: start: 202410, end: 202411
  2. TAMOXIFEN [Concomitant]
     Active Substance: TAMOXIFEN
     Indication: Breast cancer
     Route: 065

REACTIONS (2)
  - Alanine aminotransferase increased [Recovered/Resolved]
  - Aspartate aminotransferase increased [Recovered/Resolved]

NARRATIVE: CASE EVENT DATE: 20241001
